FAERS Safety Report 6753167-4 (Version None)
Quarter: 2010Q2

REPORT INFORMATION
  Report Type: 
  Country: None (occurrence: None)
  Receive Date: 20100603
  Receipt Date: 20100524
  Transmission Date: 20101027
  Serious: Yes (Hospitalization)
  Sender: FDA-Public Use
  Company Number: DK-NOVOPROD-300975

PATIENT
  Age: 30 Year
  Sex: Female
  Weight: 87 kg

DRUGS (2)
  1. NOVOMIX 30 FLEXPEN [Suspect]
     Indication: GESTATIONAL DIABETES
     Dosage: 16 IU, QD
  2. METFORMIN HCL [Concomitant]

REACTIONS (4)
  - MALAISE [None]
  - NAUSEA [None]
  - PREGNANCY [None]
  - PRURITUS [None]
